FAERS Safety Report 18348163 (Version 1)
Quarter: 2020Q4

REPORT INFORMATION
  Report Type: Spontaneous
  Country: GB (occurrence: GB)
  Receive Date: 20201006
  Receipt Date: 20201006
  Transmission Date: 20210114
  Serious: Yes (Other)
  Sender: FDA-Public Use
  Company Number: NVSC2020GB245834

PATIENT
  Age: 51 Year
  Sex: Female

DRUGS (2)
  1. IMRALDI [Suspect]
     Active Substance: ADALIMUMAB
     Indication: ANKYLOSING SPONDYLITIS
     Dosage: 40 MG, BIW
     Route: 058
  2. METHOTREXATE. [Suspect]
     Active Substance: METHOTREXATE
     Indication: PRODUCT USED FOR UNKNOWN INDICATION
     Dosage: UNK
     Route: 065

REACTIONS (9)
  - Wrong technique in product usage process [Unknown]
  - Neck pain [Unknown]
  - Arthralgia [Unknown]
  - Fear of injection [Unknown]
  - Injection site pain [Unknown]
  - Injection site bruising [Unknown]
  - Device issue [Unknown]
  - Injection site mass [Unknown]
  - Pain in extremity [Unknown]
